FAERS Safety Report 4783573-9 (Version None)
Quarter: 2005Q3

REPORT INFORMATION
  Report Type: 
  Country: None (occurrence: None)
  Receive Date: 20050929
  Receipt Date: 20050921
  Transmission Date: 20060218
  Serious: Yes (Hospitalization)
  Sender: FDA-Public Use
  Company Number: US-JNJFOC-20050801058

PATIENT
  Age: 87 Year
  Sex: Female

DRUGS (7)
  1. TYLENOL (CAPLET) [Suspect]
  2. TYLENOL (CAPLET) [Suspect]
     Indication: DRUG USE FOR UNKNOWN INDICATION
  3. IBUPROFEN [Suspect]
     Indication: ARTHRITIS
  4. VIOXX [Suspect]
     Indication: DRUG USE FOR UNKNOWN INDICATION
  5. FOSAMAX [Suspect]
  6. FOSAMAX [Suspect]
     Indication: ARTHRITIS
  7. VITAMINS [Concomitant]

REACTIONS (1)
  - ULCER HAEMORRHAGE [None]
